FAERS Safety Report 6070035-4 (Version None)
Quarter: 2009Q1

REPORT INFORMATION
  Report Type: 
  Country: None (occurrence: None)
  Receive Date: 20090209
  Receipt Date: 20090130
  Transmission Date: 20090719
  Serious: Yes (Hospitalization)
  Sender: FDA-Public Use
  Company Number: PHHY2009BE03487

PATIENT
  Age: 70 Year
  Sex: Male

DRUGS (3)
  1. EXFORGE [Suspect]
     Indication: HYPERTENSION
     Dosage: 10/160 MG DAILY
     Route: 048
     Dates: start: 20080601
  2. LIPITOR [Concomitant]
  3. PIROXICAM [Concomitant]
     Indication: ARTHRITIS

REACTIONS (4)
  - BLOOD PRESSURE SYSTOLIC INCREASED [None]
  - DYSPNOEA [None]
  - ENDOCARDITIS [None]
  - TOOTH DISORDER [None]
